FAERS Safety Report 20729603 (Version 1)
Quarter: 2022Q2

REPORT INFORMATION
  Report Type: Spontaneous
  Country: US (occurrence: US)
  Receive Date: 20220420
  Receipt Date: 20220420
  Transmission Date: 20220721
  Serious: Yes (Hospitalization)
  Sender: FDA-Public Use
  Company Number: US-MYLANLABS-2022M1027720

PATIENT
  Sex: Female

DRUGS (35)
  1. VINORELBINE [Suspect]
     Active Substance: VINORELBINE TARTRATE
     Indication: Adenocarcinoma
     Dosage: UNK UNK, QW; 2 CYCLES
     Route: 065
  2. VINORELBINE [Suspect]
     Active Substance: VINORELBINE TARTRATE
     Indication: Metastases to liver
  3. VINORELBINE [Suspect]
     Active Substance: VINORELBINE TARTRATE
     Indication: Non-small cell lung cancer metastatic
  4. VINORELBINE [Suspect]
     Active Substance: VINORELBINE TARTRATE
     Indication: Metastases to bone
  5. VINORELBINE [Suspect]
     Active Substance: VINORELBINE TARTRATE
     Indication: Metastases to lymph nodes
  6. PEMETREXED [Suspect]
     Active Substance: PEMETREXED
     Indication: Adenocarcinoma
     Dosage: UNK; RECHALLENGE
     Route: 065
  7. PEMETREXED [Suspect]
     Active Substance: PEMETREXED
     Indication: Metastases to liver
     Dosage: UNK, CYCLE; 3 CYCLES OF RECHALLENGE
     Route: 065
  8. PEMETREXED [Suspect]
     Active Substance: PEMETREXED
     Indication: Non-small cell lung cancer metastatic
  9. PEMETREXED [Suspect]
     Active Substance: PEMETREXED
     Indication: Metastases to bone
  10. PEMETREXED [Suspect]
     Active Substance: PEMETREXED
     Indication: Metastases to lymph nodes
  11. CRIZOTINIB [Concomitant]
     Active Substance: CRIZOTINIB
     Indication: Adenocarcinoma
     Dosage: UNK; A CLINICAL TRIAL
     Route: 065
     Dates: start: 201106
  12. CRIZOTINIB [Concomitant]
     Active Substance: CRIZOTINIB
     Indication: Metastases to liver
  13. CRIZOTINIB [Concomitant]
     Active Substance: CRIZOTINIB
     Indication: Non-small cell lung cancer metastatic
  14. CRIZOTINIB [Concomitant]
     Active Substance: CRIZOTINIB
     Indication: Metastases to bone
  15. CRIZOTINIB [Concomitant]
     Active Substance: CRIZOTINIB
     Indication: Metastases to lymph nodes
  16. CERITINIB [Concomitant]
     Active Substance: CERITINIB
     Indication: Adenocarcinoma
     Dosage: UNK
     Route: 065
  17. CERITINIB [Concomitant]
     Active Substance: CERITINIB
     Indication: Metastases to liver
  18. CERITINIB [Concomitant]
     Active Substance: CERITINIB
     Indication: Non-small cell lung cancer metastatic
  19. CERITINIB [Concomitant]
     Active Substance: CERITINIB
     Indication: Metastases to bone
  20. CERITINIB [Concomitant]
     Active Substance: CERITINIB
     Indication: Metastases to lymph nodes
  21. ALECTINIB [Concomitant]
     Active Substance: ALECTINIB
     Indication: Adenocarcinoma
     Dosage: UNK
     Route: 065
  22. ALECTINIB [Concomitant]
     Active Substance: ALECTINIB
     Indication: Metastases to liver
  23. ALECTINIB [Concomitant]
     Active Substance: ALECTINIB
     Indication: Non-small cell lung cancer metastatic
  24. ALECTINIB [Concomitant]
     Active Substance: ALECTINIB
     Indication: Metastases to bone
  25. ALECTINIB [Concomitant]
     Active Substance: ALECTINIB
     Indication: Metastases to lymph nodes
  26. BRIGATINIB [Concomitant]
     Active Substance: BRIGATINIB
     Indication: Adenocarcinoma
     Dosage: UNK
     Route: 065
  27. BRIGATINIB [Concomitant]
     Active Substance: BRIGATINIB
     Indication: Metastases to liver
  28. BRIGATINIB [Concomitant]
     Active Substance: BRIGATINIB
     Indication: Non-small cell lung cancer metastatic
  29. BRIGATINIB [Concomitant]
     Active Substance: BRIGATINIB
     Indication: Metastases to bone
  30. BRIGATINIB [Concomitant]
     Active Substance: BRIGATINIB
     Indication: Metastases to lymph nodes
  31. LORLATINIB [Concomitant]
     Active Substance: LORLATINIB
     Indication: Adenocarcinoma
     Dosage: UNK
     Route: 065
     Dates: start: 202002
  32. LORLATINIB [Concomitant]
     Active Substance: LORLATINIB
     Indication: Metastases to liver
  33. LORLATINIB [Concomitant]
     Active Substance: LORLATINIB
     Indication: Non-small cell lung cancer metastatic
  34. LORLATINIB [Concomitant]
     Active Substance: LORLATINIB
     Indication: Metastases to bone
  35. LORLATINIB [Concomitant]
     Active Substance: LORLATINIB
     Indication: Metastases to lymph nodes

REACTIONS (1)
  - Drug ineffective [Unknown]
